FAERS Safety Report 5456994-9 (Version None)
Quarter: 2007Q3

REPORT INFORMATION
  Report Type: 
  Country: None (occurrence: None)
  Receive Date: 20070918
  Receipt Date: 20070720
  Transmission Date: 20080115
  Serious: Yes (Other)
  Sender: FDA-Public Use
  Company Number: US-ASTRAZENECA-2006UW27600

PATIENT
  Sex: Female

DRUGS (3)
  1. SEROQUEL [Suspect]
     Indication: SCHIZOPHRENIA
     Dosage: 100 MG, 200 MG, 300 MG
     Route: 048
     Dates: start: 20011001, end: 20050701
  2. RISPERDAL [Suspect]
     Dates: start: 20050801, end: 20051201
  3. ZYPREXA [Suspect]
     Dosage: 1, 4, 5, 10, 15, 20 MG DOSES
     Dates: start: 19940401, end: 20050901

REACTIONS (2)
  - TARDIVE DYSKINESIA [None]
  - TYPE 2 DIABETES MELLITUS [None]
